FAERS Safety Report 5735135-4 (Version None)
Quarter: 2008Q2

REPORT INFORMATION
  Report Type: 
  Country: None (occurrence: None)
  Receive Date: 20080508
  Receipt Date: 20080508
  Transmission Date: 20081010
  Serious: Yes (Other)
  Sender: FDA-Public Use
  Company Number: None

PATIENT
  Age: 56 Year
  Sex: Female

DRUGS (1)
  1. ISOVUE-300 [Suspect]
     Dates: start: 20071119, end: 20071119

REACTIONS (1)
  - THROAT IRRITATION [None]
